FAERS Safety Report 24749083 (Version 2)
Quarter: 2024Q4

REPORT INFORMATION
  Report Type: Spontaneous
  Country: US (occurrence: US)
  Receive Date: 20241218
  Receipt Date: 20241226
  Transmission Date: 20250115
  Serious: No
  Sender: PFIZER
  Company Number: US-PFIZER INC-202200738076

PATIENT
  Age: 76 Year
  Sex: Female
  Weight: 95.238 kg

DRUGS (8)
  1. IBRANCE [Suspect]
     Active Substance: PALBOCICLIB
     Indication: Breast cancer stage IV
     Dosage: 125 MG, CYCLIC (ADMINISTER ON DAYS 1 THROUGH 21 OF A 28-DAY TREATMENT CYCLE)
     Route: 048
     Dates: start: 20220110
  2. IBRANCE [Suspect]
     Active Substance: PALBOCICLIB
     Indication: Breast cancer metastatic
     Dosage: 100 MG, CYCLIC (TABLET ORALLY DAILY, ADMINISTER ON DAYS 1 THROUGH 21 OF A 28-DAY TREATMENT CYCLE)
     Route: 048
     Dates: start: 202203
  3. IBRANCE [Suspect]
     Active Substance: PALBOCICLIB
     Indication: Endometrial cancer
  4. IBRANCE [Suspect]
     Active Substance: PALBOCICLIB
     Indication: Anaemia
  5. IBRANCE [Suspect]
     Active Substance: PALBOCICLIB
     Indication: Leukopenia
  6. IBRANCE [Suspect]
     Active Substance: PALBOCICLIB
     Indication: Uterine cancer
  7. LETROZOLE [Concomitant]
     Active Substance: LETROZOLE
     Dosage: UNK
  8. OMEPRAZOLE [Concomitant]
     Active Substance: OMEPRAZOLE
     Dosage: 40 MG, 1X/DAY
     Route: 048

REACTIONS (7)
  - Neoplasm progression [Unknown]
  - Groin pain [Unknown]
  - Arthritis [Unknown]
  - Osteosclerosis [Unknown]
  - Back pain [Unknown]
  - Muscular weakness [Unknown]
  - Product dispensing error [Unknown]
